FAERS Safety Report 8444201-4 (Version None)
Quarter: 2012Q2

REPORT INFORMATION
  Report Type: 
  Country: None (occurrence: None)
  Receive Date: 20120323
  Receipt Date: 20110708
  Transmission Date: 20120825
  Serious: Yes (Life-Threatening, Hospitalization)
  Sender: FDA-Public Use
  Company Number: 163-21880-11052970

PATIENT
  Age: 68 Year
  Sex: Female

DRUGS (7)
  1. DIOVAN [Concomitant]
  2. COUMADIN [Concomitant]
  3. SYNVISC (HYALURONATE SODIUM) INJECTION [Suspect]
     Indication: OSTEOARTHRITIS
     Dates: start: 20110420, end: 20110420
  4. REVLIMID [Suspect]
     Indication: ACUTE MYELOID LEUKAEMIA
     Dosage: 15 MG, DAILY X 3 WEEKS, PO
     Dates: start: 20110328
  5. DEXAMETHASONE [Concomitant]
  6. METFFORMIN HYDROCHLORIDE [Concomitant]
  7. FOLIC ACID [Concomitant]

REACTIONS (1)
  - DEEP VEIN THROMBOSIS [None]
